FAERS Safety Report 10950856 (Version 2)
Quarter: 2015Q2

REPORT INFORMATION
  Report Type: Spontaneous
  Country: US (occurrence: US)
  Receive Date: 20150324
  Receipt Date: 20150406
  Transmission Date: 20150821
  Serious: No
  Sender: FDA-Public Use
  Company Number: US-GILEAD-2015-0143124

PATIENT
  Age: 71 Year
  Sex: Female

DRUGS (3)
  1. DEXILANT [Concomitant]
     Active Substance: DEXLANSOPRAZOLE
     Indication: PRODUCT USED FOR UNKNOWN INDICATION
  2. HARVONI [Suspect]
     Active Substance: LEDIPASVIR\SOFOSBUVIR
     Indication: HEPATITIS C
     Dosage: UNK
     Route: 065
     Dates: start: 20150227
  3. LEVSIN [Concomitant]
     Active Substance: HYOSCYAMINE SULFATE
     Indication: PRODUCT USED FOR UNKNOWN INDICATION

REACTIONS (5)
  - Abdominal pain [Not Recovered/Not Resolved]
  - Diarrhoea [Recovered/Resolved]
  - Headache [Not Recovered/Not Resolved]
  - Diarrhoea [Not Recovered/Not Resolved]
  - Fatigue [Not Recovered/Not Resolved]

NARRATIVE: CASE EVENT DATE: 201503
